FAERS Safety Report 21196908 (Version 1)
Quarter: 2022Q3

REPORT INFORMATION
  Report Type: Spontaneous
  Country: FR (occurrence: FR)
  Receive Date: 20220810
  Receipt Date: 20220810
  Transmission Date: 20221027
  Serious: Yes (Life-Threatening, Hospitalization)
  Sender: FDA-Public Use
  Company Number: FR-JAZZ-2022-FR-015010

PATIENT

DRUGS (50)
  1. VYXEOS [Suspect]
     Active Substance: CYTARABINE\DAUNORUBICIN
     Indication: Acute myeloid leukaemia
     Dosage: AN INDUCTION CYCLE AT RATE OF 3 DOSES THEN A CATCH-UP AT THE RATE OF 2 DOSES
  2. VYXEOS [Suspect]
     Active Substance: CYTARABINE\DAUNORUBICIN
     Dosage: 44 MG/100 MG
     Dates: start: 20220307, end: 20220311
  3. VYXEOS [Suspect]
     Active Substance: CYTARABINE\DAUNORUBICIN
     Dosage: UNK, TID
     Dates: start: 20220323, end: 20220325
  4. AMIKACIN SULFATE [Concomitant]
     Active Substance: AMIKACIN SULFATE
     Indication: Product used for unknown indication
     Dosage: UNK
     Dates: start: 20220321, end: 20220323
  5. SODIUM BICARBONATE [Concomitant]
     Active Substance: SODIUM BICARBONATE
     Indication: Product used for unknown indication
     Dosage: ONE UNIT
     Dates: start: 20220307, end: 20220615
  6. DEXTROSE\POTASSIUM CHLORIDE\SODIUM CHLORIDE [Concomitant]
     Active Substance: DEXTROSE\POTASSIUM CHLORIDE\SODIUM CHLORIDE
     Indication: Product used for unknown indication
     Dosage: 2000 MILLILITER
     Dates: start: 20220307, end: 20220312
  7. DEXTROSE\POTASSIUM CHLORIDE\SODIUM CHLORIDE [Concomitant]
     Active Substance: DEXTROSE\POTASSIUM CHLORIDE\SODIUM CHLORIDE
     Dosage: 1000 MILLILITER
  8. CEFOTAXIME [Concomitant]
     Active Substance: CEFOTAXIME SODIUM
     Indication: Product used for unknown indication
     Dosage: 2 GRAM, TID
     Dates: start: 20220331, end: 20220615
  9. DEXAMETHASONE + NEOMYCIN [Concomitant]
     Indication: Product used for unknown indication
     Dosage: 1 DROP, TID
     Dates: start: 20220425, end: 20220502
  10. SODIUM CHLORIDE [Concomitant]
     Active Substance: SODIUM CHLORIDE
     Indication: Product used for unknown indication
     Dosage: 2000 MILLILITER
     Dates: start: 20220306, end: 20220312
  11. SODIUM CHLORIDE [Concomitant]
     Active Substance: SODIUM CHLORIDE
     Dosage: 1000 MILLILITER
     Dates: start: 20220312, end: 20220404
  12. RASBURICASE [Concomitant]
     Active Substance: RASBURICASE
     Indication: Product used for unknown indication
     Dosage: 7.5 MILLIGRAM
     Dates: start: 20220308, end: 20220308
  13. FUROSEMIDE [Concomitant]
     Active Substance: FUROSEMIDE
     Indication: Product used for unknown indication
     Dosage: 20 MILLIGRAM
     Dates: start: 20220406, end: 20220406
  14. FUROSEMIDE [Concomitant]
     Active Substance: FUROSEMIDE
     Dosage: 20 MILLIGRAM
     Route: 042
     Dates: start: 20220308, end: 20220308
  15. FUROSEMIDE [Concomitant]
     Active Substance: FUROSEMIDE
     Dosage: 1 MILLIGRAM
     Route: 042
     Dates: start: 20220312, end: 20220605
  16. FUROSEMIDE [Concomitant]
     Active Substance: FUROSEMIDE
     Dosage: 20 MILLIGRAM
     Route: 042
     Dates: start: 20220317, end: 20220317
  17. FUROSEMIDE [Concomitant]
     Active Substance: FUROSEMIDE
     Dosage: 40 MILLIGRAM
     Route: 042
     Dates: start: 20220324, end: 20220324
  18. FUROSEMIDE [Concomitant]
     Active Substance: FUROSEMIDE
     Dosage: 40 MILLIGRAM
     Route: 048
     Dates: start: 20220325, end: 20220325
  19. FUROSEMIDE [Concomitant]
     Active Substance: FUROSEMIDE
     Dosage: 20 MILLIGRAM
     Route: 042
     Dates: start: 20220426, end: 20220426
  20. FUROSEMIDE [Concomitant]
     Active Substance: FUROSEMIDE
     Dosage: 20 MILLIGRAM
     Route: 042
     Dates: start: 20220427, end: 20220427
  21. DEXTROSE [Concomitant]
     Active Substance: DEXTROSE
     Indication: Product used for unknown indication
     Dosage: 2000 MILLILITER
     Dates: start: 20220306, end: 20220307
  22. PANTOPRAZOLE [Concomitant]
     Active Substance: PANTOPRAZOLE
     Indication: Product used for unknown indication
     Dosage: UNK
     Dates: start: 20220513, end: 20220615
  23. PHOCYTAN [Concomitant]
     Active Substance: .ALPHA.-GLUCOSE-1-PHOSPHATE
     Indication: Product used for unknown indication
     Dosage: 0.66 MMOL/ML
     Dates: start: 20220401, end: 20220404
  24. PHOCYTAN [Concomitant]
     Active Substance: .ALPHA.-GLUCOSE-1-PHOSPHATE
     Dosage: 0.66 MMOL/ML
     Dates: start: 20220404, end: 20220408
  25. PIPERACILLIN AND TAZOBACTAM [Concomitant]
     Active Substance: PIPERACILLIN SODIUM\TAZOBACTAM SODIUM
     Indication: Product used for unknown indication
     Dosage: 4G+500 MG
     Dates: start: 20220321, end: 20220331
  26. PIPERACILLIN AND TAZOBACTAM [Concomitant]
     Active Substance: PIPERACILLIN SODIUM\TAZOBACTAM SODIUM
     Dosage: 4 GRAM
     Route: 042
     Dates: start: 20220308, end: 20220321
  27. POSACONAZOLE [Concomitant]
     Active Substance: POSACONAZOLE
     Indication: Product used for unknown indication
     Dosage: 1 CP
     Route: 048
     Dates: start: 20220308, end: 20220309
  28. POSACONAZOLE [Concomitant]
     Active Substance: POSACONAZOLE
     Dosage: 1 CP
     Route: 048
     Dates: start: 20220310, end: 20220408
  29. POSACONAZOLE [Concomitant]
     Active Substance: POSACONAZOLE
     Dosage: 1 CP
     Route: 048
     Dates: start: 20220412, end: 20220615
  30. POTASSIUM CHLORIDE [Concomitant]
     Active Substance: POTASSIUM CHLORIDE
     Indication: Product used for unknown indication
     Dosage: 1 GRAM
     Route: 042
     Dates: start: 20220404, end: 20220404
  31. VALACYCLOVIR HYDROCHLORIDE [Concomitant]
     Active Substance: VALACYCLOVIR HYDROCHLORIDE
     Indication: Product used for unknown indication
     Dosage: 500 MILLIGRAM
     Route: 048
     Dates: start: 20220308, end: 20220615
  32. VANCOMYCIN HYDROCHLORIDE [Concomitant]
     Active Substance: VANCOMYCIN HYDROCHLORIDE
     Indication: Product used for unknown indication
     Dosage: 2000 MILLIGRAM
     Route: 042
     Dates: start: 20220324, end: 20220325
  33. VANCOMYCIN HYDROCHLORIDE [Concomitant]
     Active Substance: VANCOMYCIN HYDROCHLORIDE
     Dosage: 1000 MILLIGRAM
     Route: 042
     Dates: start: 20220403, end: 20220403
  34. VANCOMYCIN HYDROCHLORIDE [Concomitant]
     Active Substance: VANCOMYCIN HYDROCHLORIDE
     Dosage: 1000 MILLIGRAM
     Route: 042
     Dates: start: 20220403, end: 20220403
  35. VANCOMYCIN HYDROCHLORIDE [Concomitant]
     Active Substance: VANCOMYCIN HYDROCHLORIDE
     Dosage: 2000 MILLIGRAM
     Route: 042
     Dates: start: 20220403, end: 20220414
  36. VANCOMYCIN HYDROCHLORIDE [Concomitant]
     Active Substance: VANCOMYCIN HYDROCHLORIDE
     Dosage: 3000 MILLIGRAM
     Route: 042
     Dates: start: 20220322, end: 20220322
  37. VANCOMYCIN HYDROCHLORIDE [Concomitant]
     Active Substance: VANCOMYCIN HYDROCHLORIDE
     Dosage: 750 MILLIGRAM
     Route: 042
     Dates: start: 20220321, end: 20220321
  38. VANCOMYCIN HYDROCHLORIDE [Concomitant]
     Active Substance: VANCOMYCIN HYDROCHLORIDE
     Dosage: 2500 MILLIGRAM
     Route: 042
     Dates: start: 20220405, end: 20220406
  39. VANCOMYCIN HYDROCHLORIDE [Concomitant]
     Active Substance: VANCOMYCIN HYDROCHLORIDE
     Dosage: 3000 MILLIGRAM
     Route: 042
     Dates: start: 20220406, end: 20220418
  40. VANCOMYCIN HYDROCHLORIDE [Concomitant]
     Active Substance: VANCOMYCIN HYDROCHLORIDE
     Dosage: 2500 MILLIGRAM
     Route: 042
     Dates: start: 20220325, end: 20220329
  41. VANCOMYCIN HYDROCHLORIDE [Concomitant]
     Active Substance: VANCOMYCIN HYDROCHLORIDE
     Dosage: 2000 MILLIGRAM
     Route: 042
     Dates: start: 20220322, end: 20220324
  42. VITAMIN K [Concomitant]
     Active Substance: PHYTONADIONE
     Indication: Product used for unknown indication
     Dosage: 10MG/1 ML
     Route: 042
     Dates: start: 20220314, end: 20220331
  43. VITAMIN K [Concomitant]
     Active Substance: PHYTONADIONE
     Dosage: 10MG/1 ML
     Route: 042
     Dates: start: 20220404, end: 20220408
  44. VITAMIN K [Concomitant]
     Active Substance: PHYTONADIONE
     Dosage: 10MG/1 ML)
     Route: 042
     Dates: start: 20220421, end: 20220425
  45. VITAMIN K [Concomitant]
     Active Substance: PHYTONADIONE
     Dosage: 10MG/1 ML
     Route: 042
     Dates: start: 20220425, end: 20220429
  46. FILGRASTIM [Concomitant]
     Active Substance: FILGRASTIM
     Indication: Product used for unknown indication
     Dosage: UNK
     Route: 058
     Dates: start: 20220419, end: 20220429
  47. NEFOPAM [Concomitant]
     Active Substance: NEFOPAM
     Indication: Product used for unknown indication
     Dosage: 20 MG/2ML
     Dates: start: 20220307, end: 20220615
  48. DOLIPRANE [Concomitant]
     Active Substance: ACETAMINOPHEN
     Indication: Product used for unknown indication
     Dosage: UNK
     Route: 048
     Dates: start: 20220321, end: 20220615
  49. CALCIUM CHLORIDE\MAGNESIUM CHLORIDE\MALIC ACID\POTASSIUM CHLORIDE\SODI [Concomitant]
     Active Substance: CALCIUM CHLORIDE\MAGNESIUM CHLORIDE\MALIC ACID\POTASSIUM CHLORIDE\SODIUM ACETATE\SODIUM CHLORIDE
     Indication: Product used for unknown indication
     Dosage: 500 MILLILITER
     Route: 042
     Dates: start: 20220322, end: 20220421
  50. TRAMADOL [Concomitant]
     Active Substance: TRAMADOL
     Indication: Product used for unknown indication
     Dosage: 50 MILLIGRAM
     Route: 048
     Dates: start: 20220306, end: 20220615

REACTIONS (1)
  - Drug ineffective [Unknown]
